FAERS Safety Report 14840294 (Version 1)
Quarter: 2018Q2

REPORT INFORMATION
  Report Type: Report from Study
  Country: US (occurrence: US)
  Receive Date: 20180503
  Receipt Date: 20180503
  Transmission Date: 20180711
  Serious: Yes (Hospitalization, Other)
  Sender: FDA-Public Use
  Company Number: US-BRISTOL-MYERS SQUIBB COMPANY-BMS-2018-038823

PATIENT
  Age: 55 Year
  Sex: Male
  Weight: 52.97 kg

DRUGS (2)
  1. IPILIMUMAB [Suspect]
     Active Substance: IPILIMUMAB
     Indication: TESTIS CANCER
     Dosage: 51 MG, UNK
     Route: 042
     Dates: start: 20180212, end: 20180212
  2. NIVOLUMAB [Suspect]
     Active Substance: NIVOLUMAB
     Indication: TESTIS CANCER
     Dosage: 720 MG, OVER 30 MINUTES ON DAYS 1, 15, AND 29
     Route: 042
     Dates: start: 20180212, end: 20180312

REACTIONS (3)
  - Adrenal insufficiency [Recovering/Resolving]
  - Hypotension [Recovering/Resolving]
  - Hyperthyroidism [Recovering/Resolving]

NARRATIVE: CASE EVENT DATE: 20180402
